FAERS Safety Report 20645534 (Version 1)
Quarter: 2022Q1

REPORT INFORMATION
  Report Type: Spontaneous
  Country: IN (occurrence: IN)
  Receive Date: 20220328
  Receipt Date: 20220328
  Transmission Date: 20220423
  Serious: Yes (Death, Hospitalization, Other)
  Sender: FDA-Public Use
  Company Number: IN-LUPIN PHARMACEUTICALS INC.-2022-04226

PATIENT
  Age: 21 Year
  Sex: Female

DRUGS (4)
  1. METHYLPREDNISOLONE [Suspect]
     Active Substance: METHYLPREDNISOLONE
     Indication: Cryptococcosis
     Dosage: 40 MILLIGRAM, QD
     Route: 065
  2. AZATHIOPRINE [Suspect]
     Active Substance: AZATHIOPRINE
     Indication: Cryptococcosis
     Dosage: 40 MILLIGRAM, QD
     Route: 065
  3. PIPERACILLIN AND TAZOBACTAM [Concomitant]
     Active Substance: PIPERACILLIN SODIUM\TAZOBACTAM SODIUM
     Indication: Cryptococcosis
     Dosage: UNK
     Route: 065
  4. FLUCONAZOLE [Concomitant]
     Active Substance: FLUCONAZOLE
     Indication: Cryptococcosis
     Dosage: UNK
     Route: 065

REACTIONS (10)
  - Cryptococcosis [Fatal]
  - Cardiac arrest [Fatal]
  - Carditis [Unknown]
  - Hepatitis [Unknown]
  - Serositis [Unknown]
  - Enteritis [Unknown]
  - Renal failure [Unknown]
  - Thrombocytopenia [Unknown]
  - Mental status changes [Unknown]
  - Uraemic encephalopathy [Unknown]
